FAERS Safety Report 4320127-2 (Version None)
Quarter: 2004Q1

REPORT INFORMATION
  Report Type: 
  Country: None (occurrence: None)
  Receive Date: 20040317
  Receipt Date: 20040304
  Transmission Date: 20041129
  Serious: Yes (Hospitalization)
  Sender: FDA-Public Use
  Company Number: 2004-FF-00014FF (0)

PATIENT
  Age: 37 Year
  Sex: Male

DRUGS (3)
  1. VIRAMUNE [Suspect]
     Indication: HIV INFECTION
     Dosage: 400 MG (200 MG) PO
     Route: 048
     Dates: start: 20031115, end: 20031210
  2. VIREAD [Concomitant]
  3. ZIAGEN [Concomitant]

REACTIONS (6)
  - CHOLECYSTITIS [None]
  - CONJUNCTIVITIS [None]
  - CYTOLYTIC HEPATITIS [None]
  - DEPRESSION [None]
  - LOCALISED OEDEMA [None]
  - RASH [None]
